FAERS Safety Report 9861675 (Version 2)
Quarter: 2014Q1

REPORT INFORMATION
  Report Type: Spontaneous
  Country: US (occurrence: US)
  Receive Date: 20140203
  Receipt Date: 20140203
  Transmission Date: 20141002
  Serious: No
  Sender: FDA-Public Use
  Company Number: US-DRREDDYS-USA/USA/13/0035581

PATIENT
  Sex: Female

DRUGS (1)
  1. FONDAPARINUX SODIUM [Suspect]
     Indication: KNEE OPERATION
     Route: 065
     Dates: end: 20131119

REACTIONS (1)
  - Bone pain [Unknown]
